FAERS Safety Report 10023808 (Version 3)
Quarter: 2014Q4

REPORT INFORMATION
  Report Type: Report from Study
  Country: CA (occurrence: CA)
  Receive Date: 20140320
  Receipt Date: 20141118
  Transmission Date: 20150528
  Serious: Yes (Hospitalization)
  Sender: FDA-Public Use
  Company Number: CA-JNJFOC-20140309536

PATIENT
  Age: 63 Year
  Sex: Female
  Weight: 124.5 kg

DRUGS (1)
  1. REMICADE [Suspect]
     Active Substance: INFLIXIMAB
     Indication: CROHN^S DISEASE
     Route: 042
     Dates: start: 20090716, end: 20140313

REACTIONS (5)
  - Pulmonary embolism [Recovered/Resolved]
  - Breast neoplasm [Unknown]
  - Breast discharge [Unknown]
  - Breast cancer [Unknown]
  - Erythema [Unknown]

NARRATIVE: CASE EVENT DATE: 20140403
